FAERS Safety Report 5020478-2 (Version None)
Quarter: 2006Q2

REPORT INFORMATION
  Report Type: 
  Country: None (occurrence: None)
  Receive Date: 20060531
  Receipt Date: 20060516
  Transmission Date: 20061013
  Serious: Yes (Hospitalization)
  Sender: FDA-Public Use
  Company Number: WAES 0604CHN00003

PATIENT
  Age: 22 Year
  Sex: Male

DRUGS (1)
  1. VYTORIN [Suspect]
     Indication: DRUG LEVEL
     Dosage: 10 MG/1X PO
     Route: 048
     Dates: start: 20060330, end: 20060526

REACTIONS (4)
  - ATRIAL FIBRILLATION [None]
  - ATRIOVENTRICULAR BLOCK FIRST DEGREE [None]
  - ATRIOVENTRICULAR BLOCK SECOND DEGREE [None]
  - VENTRICULAR HYPERTROPHY [None]
